FAERS Safety Report 24446409 (Version 1)
Quarter: 2024Q4

REPORT INFORMATION
  Report Type: Spontaneous
  Country: CA (occurrence: CA)
  Receive Date: 20241016
  Receipt Date: 20241016
  Transmission Date: 20250114
  Serious: Yes (Hospitalization)
  Sender: ROCHE
  Company Number: CA-ROCHE-2864085

PATIENT
  Sex: Female

DRUGS (8)
  1. TOCILIZUMAB [Suspect]
     Active Substance: TOCILIZUMAB
     Indication: Still^s disease
     Route: 065
  2. ANAKINRA [Suspect]
     Active Substance: ANAKINRA
     Indication: Still^s disease
     Route: 065
  3. CANAKINUMAB [Suspect]
     Active Substance: CANAKINUMAB
     Indication: Still^s disease
     Route: 065
  4. CYCLOSPORINE [Suspect]
     Active Substance: CYCLOSPORINE
     Indication: Still^s disease
     Route: 065
  5. METHOTREXATE [Suspect]
     Active Substance: METHOTREXATE
     Indication: Still^s disease
     Route: 065
  6. TOFACITINIB [Suspect]
     Active Substance: TOFACITINIB
     Indication: Still^s disease
     Route: 065
  7. MYCOPHENOLATE MOFETIL [Concomitant]
     Active Substance: MYCOPHENOLATE MOFETIL
  8. RITUXIMAB [Concomitant]
     Active Substance: RITUXIMAB

REACTIONS (13)
  - Treatment failure [Unknown]
  - Cushingoid [Recovered/Resolved]
  - Drug ineffective [Recovered/Resolved]
  - Epidural lipomatosis [Recovered/Resolved]
  - Growth retardation [Recovered/Resolved]
  - Hepatic steatosis [Recovered/Resolved]
  - Hypertensive cardiomyopathy [Recovered/Resolved]
  - Obstructive sleep apnoea syndrome [Recovered/Resolved]
  - Short stature [Recovered/Resolved]
  - Spinal disorder [Recovered/Resolved]
  - Spinal fracture [Recovered/Resolved]
  - Spinal stenosis [Recovered/Resolved]
  - Osteoporosis [Recovered/Resolved]
